FAERS Safety Report 21435614 (Version 1)
Quarter: 2022Q4

REPORT INFORMATION
  Report Type: Spontaneous
  Country: FR (occurrence: FR)
  Receive Date: 20221010
  Receipt Date: 20221010
  Transmission Date: 20230112
  Serious: Yes (Other)
  Sender: FDA-Public Use
  Company Number: None

PATIENT
  Age: 19 Year
  Sex: Female

DRUGS (5)
  1. BROMAZEPAM [Suspect]
     Active Substance: BROMAZEPAM
     Indication: Product used for unknown indication
     Dosage: 6MG TAB 25 TAB EQUAL TO 150MG BETWEEN 4:30-9 PM
     Route: 048
     Dates: start: 20210731, end: 20210731
  2. BROMAZEPAM [Suspect]
     Active Substance: BROMAZEPAM
     Dosage: 25DF, (25TAB,6MG IN SEVERAL DOSES-4:30-9 P.M.
     Route: 048
     Dates: start: 20210731, end: 20210731
  3. XANAX [Suspect]
     Active Substance: ALPRAZOLAM
     Indication: Product used for unknown indication
     Dosage: 0.5 MG, DAILY,(SCORED TABLET)
     Route: 048
     Dates: start: 20210731, end: 20210731
  4. CANNABIS SATIVA SUBSP. INDICA TOP [Suspect]
     Active Substance: CANNABIS SATIVA SUBSP. INDICA TOP
     Indication: Product used for unknown indication
     Dosage: CURRENTLY 2JOINT PER DAY,CONSUMED UP TO 25 JOINT/D
  5. CANNABIS SATIVA SUBSP. INDICA TOP [Suspect]
     Active Substance: CANNABIS SATIVA SUBSP. INDICA TOP
     Dosage: CURRENTLY 2JOINT PER DAY,CONSUMED UP TO 25 JOINT/D

REACTIONS (4)
  - Hypokinesia [Recovered/Resolved]
  - Bradyphrenia [Recovered/Resolved]
  - Toxicity to various agents [Recovered/Resolved]
  - Drug abuse [Not Recovered/Not Resolved]

NARRATIVE: CASE EVENT DATE: 20210731
